FAERS Safety Report 24289555 (Version 1)
Quarter: 2024Q3

REPORT INFORMATION
  Report Type: Spontaneous
  Country: US (occurrence: US)
  Receive Date: 20240906
  Receipt Date: 20240906
  Transmission Date: 20241016
  Serious: No
  Sender: BRISTOL MYERS SQUIBB
  Company Number: US-BRISTOL-MYERS SQUIBB COMPANY-2024-141773

PATIENT
  Age: 45 Year
  Sex: Male
  Weight: 94.8 kg

DRUGS (2)
  1. POMALYST [Suspect]
     Active Substance: POMALIDOMIDE
     Indication: Kaposi^s sarcoma
     Dosage: ALONE WITH 2MG CAPSULE
     Route: 048
  2. POMALYST [Suspect]
     Active Substance: POMALIDOMIDE
     Dosage: ALONE WITH 3MG CAPSULE
     Route: 048

REACTIONS (3)
  - Nausea [Unknown]
  - Constipation [Unknown]
  - Fatigue [Unknown]
